FAERS Safety Report 8571338-1 (Version None)
Quarter: 2012Q3

REPORT INFORMATION
  Report Type: 
  Country: None (occurrence: None)
  Receive Date: 20120806
  Receipt Date: 20120727
  Transmission Date: 20120928
  Serious: No
  Sender: FDA-Public Use
  Company Number: US-B.I. PHARMACEUTICALS,INC./RIDGEFIELD-2012-BP-17031BP

PATIENT
  Sex: Male
  Weight: 78 kg

DRUGS (4)
  1. PAXIL [Concomitant]
     Indication: DEPRESSION
     Dosage: 75 MG
     Route: 048
     Dates: start: 20120601
  2. TRAZODONE HYDROCHLORIDE [Concomitant]
     Indication: INSOMNIA
     Dosage: 500 MG
     Route: 048
     Dates: start: 20120601
  3. SPIRIVA [Suspect]
     Indication: PROPHYLAXIS
     Dosage: 18 MCG
     Route: 055
     Dates: start: 20120718
  4. WELLBUTRIN [Concomitant]
     Indication: DEPRESSION
     Dosage: 150 MG
     Route: 048
     Dates: start: 20120601

REACTIONS (4)
  - DRY MOUTH [None]
  - SPEECH DISORDER [None]
  - DRY THROAT [None]
  - ABDOMINAL PAIN UPPER [None]
